FAERS Safety Report 8905246 (Version 2)
Quarter: 2012Q4

REPORT INFORMATION
  Report Type: 
  Country: TR (occurrence: TR)
  Receive Date: 20121109
  Receipt Date: 20121128
  Transmission Date: 20130627
  Serious: Yes (Other)
  Sender: FDA-Public Use
  Company Number: PHHY2012TR102241

PATIENT
  Age: 30 Year
  Sex: Female

DRUGS (3)
  1. PAROXETINE [Suspect]
     Indication: DEPRESSION
     Dosage: 20 mg, per day
  2. MIRTAZAPINE [Interacting]
     Indication: DEPRESSION
     Dosage: 30 mg, per day
  3. FLUTICASONE [Interacting]
     Indication: ASTHMA
     Dosage: 500 ug, BID

REACTIONS (24)
  - Cushing^s syndrome [Unknown]
  - Cushingoid [Unknown]
  - Asthenia [Unknown]
  - Acne [Unknown]
  - Adrenal suppression [Not Recovered/Not Resolved]
  - Weight increased [Unknown]
  - Muscle atrophy [Unknown]
  - Contusion [Unknown]
  - Stomatitis [Unknown]
  - Skin striae [Unknown]
  - Face oedema [Unknown]
  - Fat tissue increased [Unknown]
  - Lipohypertrophy [Unknown]
  - Myopathy [Unknown]
  - Thrombosis [Unknown]
  - Oedema peripheral [Unknown]
  - Blood testosterone decreased [Unknown]
  - Impaired fasting glucose [Unknown]
  - Hypokalaemia [Unknown]
  - Fatigue [Unknown]
  - Decreased appetite [Unknown]
  - Myalgia [Unknown]
  - Drug interaction [Unknown]
  - Drug level increased [Unknown]
